FAERS Safety Report 10975082 (Version 1)
Quarter: 2015Q1

REPORT INFORMATION
  Report Type: Spontaneous
  Country: US (occurrence: None)
  Receive Date: 20150226
  Receipt Date: 20150226
  Transmission Date: 20150721
  Serious: No
  Sender: FDA-Public Use
  Company Number: TPA2009A01518

PATIENT
  Age: 40 Year
  Sex: Male

DRUGS (1)
  1. ULORIC [Suspect]
     Active Substance: FEBUXOSTAT
     Indication: GOUT
     Route: 048
     Dates: start: 20090617

REACTIONS (3)
  - Muscular weakness [None]
  - Headache [None]
  - Myalgia [None]

NARRATIVE: CASE EVENT DATE: 20090617
